FAERS Safety Report 14340386 (Version 1)
Quarter: 2018Q1

REPORT INFORMATION
  Report Type: Spontaneous
  Country: BR (occurrence: BR)
  Receive Date: 20180101
  Receipt Date: 20180101
  Transmission Date: 20180509
  Serious: Yes (Other)
  Sender: FDA-Public Use
  Company Number: BR-ABBVIE-17P-020-1827418-00

PATIENT
  Age: 70 Year
  Sex: Female

DRUGS (4)
  1. CLONAZEPAM. [Concomitant]
     Active Substance: CLONAZEPAM
  2. CLONAZEPAM. [Concomitant]
     Active Substance: CLONAZEPAM
     Indication: PRODUCT USED FOR UNKNOWN INDICATION
     Dosage: FREQUENCY: NIGHT; DAILY DOSE:2MG;
  3. DEPAKENE [Suspect]
     Active Substance: VALPROIC ACID
     Indication: SLEEP DISORDER THERAPY
     Dosage: FREQUENCY: BREAKFAST;0.5 TAB IN AM, 1 TAB IN PM
     Route: 065
  4. DEPAKENE [Suspect]
     Active Substance: VALPROIC ACID
     Dosage: FREQUENCY: NIGHT; DAILY DOSE: 500MG
     Route: 065

REACTIONS (16)
  - Hypoacusis [Not Recovered/Not Resolved]
  - Anal haemorrhage [Not Recovered/Not Resolved]
  - Sedation [Not Recovered/Not Resolved]
  - Intentional product use issue [Unknown]
  - Blood glucose increased [Not Recovered/Not Resolved]
  - Asthenia [Not Recovered/Not Resolved]
  - Weight decreased [Not Recovered/Not Resolved]
  - Flatulence [Not Recovered/Not Resolved]
  - Gait disturbance [Unknown]
  - Blood cholesterol increased [Not Recovered/Not Resolved]
  - Dizziness [Not Recovered/Not Resolved]
  - Somnolence [Not Recovered/Not Resolved]
  - Product use issue [Unknown]
  - Tremor [Not Recovered/Not Resolved]
  - Fall [Not Recovered/Not Resolved]
  - Vision blurred [Not Recovered/Not Resolved]
